FAERS Safety Report 8106807-1 (Version None)
Quarter: 2012Q1

REPORT INFORMATION
  Report Type: 
  Country: None (occurrence: None)
  Receive Date: 20120202
  Receipt Date: 20120120
  Transmission Date: 20120608
  Serious: Yes (Other)
  Sender: FDA-Public Use
  Company Number: CA-JNJFOC-20120200243

PATIENT
  Sex: Female
  Weight: 100 kg

DRUGS (3)
  1. REMICADE [Suspect]
     Indication: CROHN'S DISEASE
     Route: 042
  2. LIPITOR [Concomitant]
     Route: 065
  3. KEFLEX [Concomitant]
     Indication: PROPHYLAXIS
     Dosage: ADMINISTERED FOR 7 DAYS
     Route: 048
     Dates: start: 20111201

REACTIONS (2)
  - LACERATION [None]
  - LOCALISED INFECTION [None]
